FAERS Safety Report 7790934-2 (Version None)
Quarter: 2011Q3

REPORT INFORMATION
  Report Type: 
  Country: None (occurrence: None)
  Receive Date: 20110930
  Receipt Date: 20110930
  Transmission Date: 20111222
  Serious: Yes (Hospitalization)
  Sender: FDA-Public Use
  Company Number: None

PATIENT
  Age: 44 Year
  Sex: Female
  Weight: 58 kg

DRUGS (3)
  1. NABUMETONE [Concomitant]
     Route: 048
  2. CHLORZOXAZONE [Concomitant]
     Route: 048
  3. DICLOFENAC SODIUM [Suspect]
     Indication: BACK PAIN
     Dosage: 75 MG
     Route: 046
     Dates: start: 20110713, end: 20110713

REACTIONS (3)
  - PAROXYSMAL CHOREOATHETOSIS [None]
  - DYSKINESIA [None]
  - FEELING OF BODY TEMPERATURE CHANGE [None]
